FAERS Safety Report 9329752 (Version 1)
Quarter: 2013Q2

REPORT INFORMATION
  Report Type: Spontaneous
  Country: IT (occurrence: IT)
  Receive Date: 20130604
  Receipt Date: 20130604
  Transmission Date: 20140414
  Serious: Yes (Hospitalization)
  Sender: FDA-Public Use
  Company Number: IT-TEVA-409077ISR

PATIENT
  Age: 60 Year
  Sex: Male

DRUGS (10)
  1. DAXAS [Concomitant]
     Indication: CHRONIC RESPIRATORY DISEASE
     Dosage: 500 MICROGRAM DAILY;
     Route: 048
     Dates: start: 20130321, end: 20130521
  2. SPIRIVA [Concomitant]
     Indication: CHRONIC RESPIRATORY DISEASE
     Dosage: 18 MICROGRAM DAILY;
     Dates: end: 20130521
  3. KANRENOL [Concomitant]
     Dosage: 25 MILLIGRAM DAILY;
     Route: 048
  4. CLEXANE [Concomitant]
     Dosage: 4000  DAILY;
  5. LEVOFLOXACINA TEVA [Suspect]
     Indication: RESPIRATORY TRACT INFECTION
     Dosage: 750 MILLIGRAM DAILY;
     Route: 048
     Dates: start: 20130517, end: 20130518
  6. AMPLODIPINA [Concomitant]
  7. PANTOPRAZOLO [Concomitant]
  8. RAMIPRIL [Concomitant]
  9. INDACATEROL [Concomitant]
  10. FUROSEMIDE [Concomitant]

REACTIONS (2)
  - Toxic skin eruption [Recovered/Resolved]
  - Dermatitis exfoliative [Recovered/Resolved]
